FAERS Safety Report 9122096 (Version 1)
Quarter: 2013Q1

REPORT INFORMATION
  Report Type: Report from Study
  Country: AU (occurrence: AU)
  Receive Date: 20130114
  Receipt Date: 20130114
  Transmission Date: 20140127
  Serious: Yes (Hospitalization)
  Sender: FDA-Public Use
  Company Number: PHHY2013AU002805

PATIENT
  Sex: Male

DRUGS (1)
  1. LEPONEX / CLOZARIL [Suspect]
     Dosage: 225 MG, UNK
     Dates: start: 20060603

REACTIONS (1)
  - Schizophrenia [Unknown]
